FAERS Safety Report 20155604 (Version 1)
Quarter: 2021Q4

REPORT INFORMATION
  Report Type: Spontaneous
  Country: IR (occurrence: IR)
  Receive Date: 20211207
  Receipt Date: 20211207
  Transmission Date: 20220303
  Serious: Yes (Other)
  Sender: FDA-Public Use
  Company Number: IR-LUPIN PHARMACEUTICALS INC.-2021-23834

PATIENT
  Age: 35 Year
  Sex: Female

DRUGS (6)
  1. HYDROCORTISONE [Suspect]
     Active Substance: HYDROCORTISONE
     Indication: Pustular psoriasis
     Dosage: UNK (INJECTION)
     Route: 065
  2. CLOXACILLIN [Suspect]
     Active Substance: CLOXACILLIN
     Indication: Pustular psoriasis
     Dosage: UNK
     Route: 065
  3. MUPIROCIN [Suspect]
     Active Substance: MUPIROCIN
     Indication: Pustular psoriasis
     Dosage: UNK
     Route: 065
  4. METHOTREXATE [Suspect]
     Active Substance: METHOTREXATE
     Indication: Pustular psoriasis
     Dosage: UNK
     Route: 065
  5. PREDNISOLONE [Suspect]
     Active Substance: PREDNISOLONE
     Indication: Pustular psoriasis
     Dosage: 30 MILLIGRAM, QD
     Route: 065
  6. INSULIN NOS [Suspect]
     Active Substance: INSULIN NOS
     Indication: Diabetes mellitus
     Dosage: UNK
     Route: 065

REACTIONS (4)
  - Abortion spontaneous [Unknown]
  - Maternal exposure during pregnancy [Unknown]
  - Diabetes mellitus [Unknown]
  - Vaginal haemorrhage [Unknown]
